FAERS Safety Report 21329850 (Version 1)
Quarter: 2022Q3

REPORT INFORMATION
  Report Type: Spontaneous
  Country: US (occurrence: None)
  Receive Date: 20220913
  Receipt Date: 20220913
  Transmission Date: 20221027
  Serious: No
  Sender: FDA-Public Use
  Company Number: None

PATIENT
  Age: 55 Year
  Sex: Female
  Weight: 68.5 kg

DRUGS (1)
  1. FOSAPREPITANT [Suspect]
     Active Substance: FOSAPREPITANT
     Dates: start: 20220912, end: 20220912

REACTIONS (4)
  - Dyspnoea [None]
  - Flushing [None]
  - Palpitations [None]
  - Infusion related reaction [None]

NARRATIVE: CASE EVENT DATE: 20220912
